FAERS Safety Report 6188298-3 (Version None)
Quarter: 2009Q2

REPORT INFORMATION
  Report Type: 
  Country: None (occurrence: None)
  Receive Date: 20090513
  Receipt Date: 20090507
  Transmission Date: 20091009
  Serious: Yes (Other)
  Sender: FDA-Public Use
  Company Number: GR-PFIZER INC-2009210810

PATIENT
  Age: 84 Year

DRUGS (1)
  1. QUINAPRIL HCL + HYDROCHLOROTHIAZIDE [Suspect]

REACTIONS (1)
  - PEMPHIGOID [None]
